FAERS Safety Report 5684723-2 (Version None)
Quarter: 2008Q1

REPORT INFORMATION
  Report Type: 
  Country: None (occurrence: None)
  Receive Date: 20080328
  Receipt Date: 20070816
  Transmission Date: 20080703
  Serious: No
  Sender: FDA-Public Use
  Company Number: US-BRISTOL-MYERS SQUIBB COMPANY-13866546

PATIENT
  Age: 70 Year
  Sex: Female

DRUGS (7)
  1. ERBITUX [Suspect]
     Indication: NEOPLASM MALIGNANT
     Route: 042
     Dates: start: 20070510
  2. DECADRON [Concomitant]
  3. BENADRYL [Concomitant]
  4. ALOXI [Concomitant]
  5. CARBOPLATIN [Concomitant]
  6. TYLENOL (CAPLET) [Concomitant]
  7. ATIVAN [Concomitant]

REACTIONS (2)
  - EXTRAVASATION [None]
  - INFUSION RELATED REACTION [None]
